FAERS Safety Report 19679391 (Version 1)
Quarter: 2021Q3

REPORT INFORMATION
  Report Type: Spontaneous
  Country: US (occurrence: US)
  Receive Date: 20210809
  Receipt Date: 20210809
  Transmission Date: 20211014
  Serious: Yes (Other)
  Sender: FDA-Public Use
  Company Number: US-GILEAD-2021-0543498

PATIENT

DRUGS (1)
  1. YESCARTA [Suspect]
     Active Substance: AXICABTAGENE CILOLEUCEL
     Indication: PRODUCT USED FOR UNKNOWN INDICATION
     Dosage: UNK, SINGLE
     Route: 042
     Dates: start: 20210603, end: 20210603

REACTIONS (8)
  - Disseminated intravascular coagulation [Not Recovered/Not Resolved]
  - Escherichia bacteraemia [Unknown]
  - Confusional state [Recovered/Resolved]
  - Disorientation [Recovered/Resolved]
  - Aphasia [Recovered/Resolved]
  - Klebsiella bacteraemia [Unknown]
  - Septic shock [Recovered/Resolved]
  - Haemophagocytic lymphohistiocytosis [Not Recovered/Not Resolved]

NARRATIVE: CASE EVENT DATE: 20210604
